FAERS Safety Report 24306087 (Version 1)
Quarter: 2024Q3

REPORT INFORMATION
  Report Type: Spontaneous
  Country: US (occurrence: US)
  Receive Date: 20240911
  Receipt Date: 20240911
  Transmission Date: 20241017
  Serious: No
  Sender: SANDOZ
  Company Number: US-SANDOZ-SDZ2024US079223

PATIENT
  Sex: Female

DRUGS (1)
  1. COMBIPATCH [Suspect]
     Active Substance: ESTRADIOL\NORETHINDRONE ACETATE
     Indication: Product used for unknown indication
     Dosage: 0.05/0.14 MG
     Route: 062
     Dates: start: 2024

REACTIONS (3)
  - Application site irritation [Not Recovered/Not Resolved]
  - Product residue present [Not Recovered/Not Resolved]
  - Product administered at inappropriate site [Not Recovered/Not Resolved]

NARRATIVE: CASE EVENT DATE: 20240101
